FAERS Safety Report 26203440 (Version 2)
Quarter: 2025Q4

REPORT INFORMATION
  Report Type: Spontaneous
  Country: US (occurrence: US)
  Receive Date: 20251226
  Receipt Date: 20251226
  Transmission Date: 20260118
  Serious: No
  Sender: CHATTEM
  Company Number: US-OPELLA-2025OHG036008

PATIENT
  Sex: Female

DRUGS (1)
  1. NASACORT ALLERGY 24HR [Suspect]
     Active Substance: TRIAMCINOLONE ACETONIDE
     Indication: Sinus disorder
     Dosage: DOSE: 55 PICOGRAM PER DOSE, STRENGTH: 120,0,055 MG PUFFS
     Route: 065

REACTIONS (3)
  - Device malfunction [Unknown]
  - Product delivery mechanism issue [Unknown]
  - No adverse event [Unknown]
